FAERS Safety Report 8497616-2 (Version None)
Quarter: 2012Q3

REPORT INFORMATION
  Report Type: 
  Country: None (occurrence: None)
  Receive Date: 20120709
  Receipt Date: 20120611
  Transmission Date: 20120928
  Serious: No
  Sender: FDA-Public Use
  Company Number: US-AMGEN-USASP2011014566

PATIENT
  Sex: Female
  Weight: 102.4 kg

DRUGS (2)
  1. ENBREL [Suspect]
     Indication: PSORIATIC ARTHROPATHY
     Dosage: 50 MG, QWK
     Dates: start: 20090325, end: 20120314
  2. ENBREL [Suspect]
     Indication: PSORIASIS

REACTIONS (4)
  - PSORIATIC ARTHROPATHY [None]
  - INFLUENZA [None]
  - PSORIASIS [None]
  - INJECTION SITE PAIN [None]
